FAERS Safety Report 9269728 (Version 4)
Quarter: 2013Q2

REPORT INFORMATION
  Report Type: Spontaneous
  Country: JP (occurrence: JP)
  Receive Date: 20130503
  Receipt Date: 20130619
  Transmission Date: 20140414
  Serious: Yes (Hospitalization)
  Sender: FDA-Public Use
  Company Number: JP-PFIZER INC-2013133120

PATIENT
  Sex: Male

DRUGS (7)
  1. DIFLUCAN [Suspect]
     Indication: ANTIFUNGAL PROPHYLAXIS
     Dosage: 100 MG, 1X/DAY
     Route: 048
  2. COLCHICINE [Interacting]
     Dosage: UNK
     Route: 048
  3. LOXONIN [Interacting]
  4. CO-DIOVAN [Suspect]
     Dosage: UNK
     Route: 048
  5. BAKTAR [Suspect]
     Dosage: UNK
     Route: 048
  6. BONALON [Suspect]
     Dosage: UNK
     Route: 048
  7. PREDONINE [Concomitant]

REACTIONS (3)
  - Drug interaction [Recovering/Resolving]
  - Renal disorder [Recovered/Resolved]
  - Dehydration [Recovering/Resolving]
